FAERS Safety Report 12051268 (Version 1)
Quarter: 2016Q1

REPORT INFORMATION
  Report Type: Spontaneous
  Country: US (occurrence: None)
  Receive Date: 20160208
  Receipt Date: 20160208
  Transmission Date: 20160526
  Serious: Yes (Other)
  Sender: FDA-Public Use
  Company Number: None

PATIENT
  Age: 59 Year
  Sex: Female
  Weight: 68.04 kg

DRUGS (20)
  1. CALCIUM CITRATE [Concomitant]
     Active Substance: CALCIUM CITRATE
  2. VITAMIN K [Concomitant]
     Active Substance: PHYTONADIONE
  3. MANGANESE [Concomitant]
     Active Substance: MANGANESE\MANGANESE CHLORIDE
  4. VITAMIN D [Concomitant]
     Active Substance: CHOLECALCIFEROL
  5. LEVOFLOXACIN 500 MG AUROBIND PHARM. [Suspect]
     Active Substance: LEVOFLOXACIN
     Indication: INFECTION PROPHYLAXIS
     Route: 048
     Dates: start: 20160202, end: 20160205
  6. METFORMIN [Concomitant]
     Active Substance: METFORMIN HYDROCHLORIDE
  7. CALCIUM [Concomitant]
     Active Substance: CALCIUM
  8. MAGNESIUM [Concomitant]
     Active Substance: MAGNESIUM
  9. COPPER [Concomitant]
     Active Substance: COPPER
  10. BORON [Concomitant]
     Active Substance: BORON
  11. TUMERIC [Concomitant]
     Active Substance: TURMERIC
  12. SIMVASTATIN. [Concomitant]
     Active Substance: SIMVASTATIN
  13. LEVOTHYROXINE. [Concomitant]
     Active Substance: LEVOTHYROXINE
  14. ASPIRIN. [Concomitant]
     Active Substance: ASPIRIN
  15. ZINC [Concomitant]
     Active Substance: ZINC\ZINC CHLORIDE
  16. OMEGA 3 FISH OIL [Concomitant]
     Active Substance: FISH OIL\OMEGA-3 FATTY ACIDS
  17. CINSULIN (CINNAMON AND CHROMIUM PICOLINATE) [Concomitant]
  18. LISINOPRIL/HCTZ [Concomitant]
     Active Substance: HYDROCHLOROTHIAZIDE\LISINOPRIL
  19. VIT. B6 [Concomitant]
  20. MULTI VITAMIN [Concomitant]
     Active Substance: VITAMINS

REACTIONS (3)
  - Diarrhoea [None]
  - Blood pressure decreased [None]
  - Insomnia [None]

NARRATIVE: CASE EVENT DATE: 20160202
